FAERS Safety Report 14417239 (Version 3)
Quarter: 2018Q3

REPORT INFORMATION
  Report Type: Spontaneous
  Country: JP (occurrence: JP)
  Receive Date: 20180122
  Receipt Date: 20180730
  Transmission Date: 20181010
  Serious: Yes (Other)
  Sender: FDA-Public Use
  Company Number: JP-009507513-1712JPN001552J

PATIENT
  Age: 46 Year
  Sex: Female

DRUGS (3)
  1. LAMICTAL [Concomitant]
     Active Substance: LAMOTRIGINE
     Dosage: UNK
     Route: 048
  2. NASONEX [Suspect]
     Active Substance: MOMETASONE FUROATE
     Dosage: 3 SPRAYS IN THE RIGHT NOSTRIL, 1 SPRAY IN THE LEFT NOSTRIL
     Route: 045
     Dates: start: 201807
  3. NASONEX [Suspect]
     Active Substance: MOMETASONE FUROATE
     Dosage: UNK
     Route: 045

REACTIONS (9)
  - Uterine pain [Recovered/Resolved]
  - Ovarian cancer [Unknown]
  - Ascites [Unknown]
  - Uterine cancer [Unknown]
  - Carbohydrate antigen 125 increased [Unknown]
  - Intentional product misuse [Unknown]
  - Uterine pain [Unknown]
  - Ovarian cyst [Unknown]
  - Ovarian rupture [Unknown]

NARRATIVE: CASE EVENT DATE: 201709
